FAERS Safety Report 23619092 (Version 1)
Quarter: 2024Q1

REPORT INFORMATION
  Report Type: Report from Study
  Country: US (occurrence: US)
  Receive Date: 20240311
  Receipt Date: 20240311
  Transmission Date: 20240410
  Serious: Yes (Hospitalization)
  Sender: FDA-Public Use
  Company Number: US-BAUSCH-BL-2024-003902

PATIENT
  Age: 79 Year
  Sex: Female

DRUGS (21)
  1. XIFAXAN [Suspect]
     Active Substance: RIFAXIMIN
     Indication: Product used for unknown indication
     Route: 065
  2. XIFAXAN [Suspect]
     Active Substance: RIFAXIMIN
     Dosage: 3 TIMES A WEEK
     Route: 048
     Dates: start: 20240221
  3. ALBUTEROL SULFATE [Concomitant]
     Active Substance: ALBUTEROL SULFATE
     Indication: Dyspnoea
     Dosage: 90MCG/ACTUATION INHALER, INHALE 2 PUFFS EVERY 6 HOURS AS NEEDED
     Route: 055
     Dates: start: 20210920
  4. ALBUTEROL SULFATE [Concomitant]
     Active Substance: ALBUTEROL SULFATE
     Indication: Wheezing
  5. COLESTID [Concomitant]
     Active Substance: COLESTIPOL HYDROCHLORIDE
     Indication: Product used for unknown indication
     Dosage: 180 TABLETS 3 REFILLS
     Route: 048
     Dates: start: 20230420
  6. IMODIUM A-D [Concomitant]
     Active Substance: LOPERAMIDE HYDROCHLORIDE
     Indication: Diarrhoea
     Dosage: TAKE 1 TAB BY MOUTH 4 TIMES A DAY AS NEEDED
     Route: 048
     Dates: start: 20220620
  7. PRILOSEC [Concomitant]
     Active Substance: OMEPRAZOLE MAGNESIUM
     Indication: Product used for unknown indication
     Dosage: TAKE 1 CAPSULE BY MOUTH TWO TIMES A DAY BEOFRE MEALS (PRIOR TO MORNING FOOD/DRINK) TAKE WITH WATER
     Route: 048
     Dates: start: 20230329
  8. TRELEGY ELLIPTA [Concomitant]
     Active Substance: FLUTICASONE FUROATE\UMECLIDINIUM BROMIDE\VILANTEROL TRIFENATATE
     Indication: Product used for unknown indication
     Dosage: 200-62.5-25 MCG BLISTER WITH DEVICE INHALER, INHALE 1 PUFF DAILY
     Route: 055
     Dates: start: 20220206
  9. PSYLLIUM HUSK [Concomitant]
     Active Substance: PSYLLIUM HUSK
     Indication: Product used for unknown indication
     Dosage: PSYLLIUM HUSK WITH SUGAR, (META FIBER WAFER ORAL)
     Route: 048
  10. ARTIFICIAL TEARS [Concomitant]
     Indication: Product used for unknown indication
     Dosage: OPHTHALMIC SOLUTION, 1 DROP INTO BOTH EYES AS NEEDED
     Route: 047
  11. FLONASE [Concomitant]
     Active Substance: FLUTICASONE PROPIONATE
     Indication: Product used for unknown indication
     Dosage: 50 MCG/ACTUATION, NASAL SPRAY, 2 SPRAYS INTO EACH NOSTRIL DAILY
     Route: 045
  12. HYDROCORTISONE [Concomitant]
     Active Substance: HYDROCORTISONE
     Indication: Product used for unknown indication
  13. LISINOPRIL [Concomitant]
     Active Substance: LISINOPRIL
     Indication: Product used for unknown indication
     Route: 048
  14. PROZAC [Concomitant]
     Active Substance: FLUOXETINE HYDROCHLORIDE
     Indication: Product used for unknown indication
     Route: 048
     Dates: start: 20060324
  15. ANSAID [Concomitant]
     Active Substance: FLURBIPROFEN
     Indication: Product used for unknown indication
     Route: 048
     Dates: start: 20060818
  16. VITAMIN B12 [Concomitant]
     Active Substance: CYANOCOBALAMIN
     Indication: Product used for unknown indication
     Dosage: 1,000 MCG/ML KIT. INJECT 1000 MCG AS DIRECTED EVERY 14 DAYS
     Route: 065
     Dates: start: 20070525
  17. TESSALON [Concomitant]
     Active Substance: BENZONATATE
     Indication: Cough
     Dosage: AS NEEDED FOR COUGH (1ST LINE)
     Route: 048
  18. FIORINAL [Concomitant]
     Active Substance: ASPIRIN\BUTALBITAL\CAFFEINE
     Indication: Product used for unknown indication
     Dosage: 50-325-40 MG, TAKE 50-325MG BY MOUTH EVERY 8 HOURS AS NEEDED
     Route: 048
     Dates: start: 20060221
  19. VITAMIN D3 [Concomitant]
     Active Substance: CHOLECALCIFEROL
     Indication: Product used for unknown indication
     Dosage: 1,250 MCG (50,000 UNIT) TAKE 1 CAPSULE EVERY MONTH BY ORAK ROUTE FOR 90 DAY
     Route: 048
  20. TYLENOL [Concomitant]
     Active Substance: ACETAMINOPHEN
     Indication: Pain
     Dosage: AS NEEDED
     Route: 048
  21. XANAX [Concomitant]
     Active Substance: ALPRAZOLAM
     Indication: Product used for unknown indication
     Dosage: AS NEEDED, 1 TAB (0.5MG) THREE TIMES A DAY AS NEEDED
     Route: 048
     Dates: start: 20190904

REACTIONS (2)
  - Hospitalisation [Unknown]
  - Inappropriate schedule of product administration [Unknown]

NARRATIVE: CASE EVENT DATE: 20240221
